FAERS Safety Report 21190227 (Version 2)
Quarter: 2022Q3

REPORT INFORMATION
  Report Type: Spontaneous
  Country: TW (occurrence: TW)
  Receive Date: 20220809
  Receipt Date: 20220819
  Transmission Date: 20221027
  Serious: Yes (Death, Hospitalization, Other)
  Sender: FDA-Public Use
  Company Number: TW-CHUGAI-2022030353

PATIENT
  Age: 71 Year
  Sex: Male
  Weight: 61.8 kg

DRUGS (8)
  1. ACTEMRA [Suspect]
     Active Substance: TOCILIZUMAB
     Indication: Rheumatoid arthritis
     Dosage: 400 MILLIGRAM, ONCE/MONTH
     Route: 041
     Dates: start: 20160629
  2. PREDNISOLONE [Concomitant]
     Active Substance: PREDNISOLONE
     Indication: Rheumatoid arthritis
     Dosage: 5 MILLIGRAM, QD
     Route: 048
     Dates: start: 20200914
  3. ZOLPIDEM TARTRATE [Concomitant]
     Active Substance: ZOLPIDEM TARTRATE
     Indication: Insomnia
     Dosage: 10 MILLIGRAM, HS
     Route: 048
     Dates: start: 20211229
  4. CEVIMELINE [Concomitant]
     Active Substance: CEVIMELINE
     Indication: Sjogren^s syndrome
     Dosage: 30 MILLIGRAM, QD
     Route: 048
     Dates: start: 20190909
  5. ASPIRIN [Concomitant]
     Active Substance: ASPIRIN
     Dosage: 100 MILLIGRAM, QD
     Route: 048
  6. CELEBREX [Concomitant]
     Active Substance: CELECOXIB
     Dosage: 200 MILLIGRAM, QD
     Route: 048
  7. ATORVASTATIN CALCIUM\EZETIMIBE [Concomitant]
     Active Substance: ATORVASTATIN CALCIUM\EZETIMIBE
     Dosage: 4 MILLIGRAM, QD
     Route: 048
  8. DOXAZOSIN MESYLATE [Concomitant]
     Active Substance: DOXAZOSIN MESYLATE
     Dosage: 1 DOSAGE FORM, QD
     Route: 048

REACTIONS (8)
  - Acute respiratory failure [Fatal]
  - Embolic cerebral infarction [Unknown]
  - Hemiparesis [Unknown]
  - Dyspnoea [Recovering/Resolving]
  - Penile haemorrhage [Unknown]
  - Ecchymosis [Unknown]
  - Agitation [Unknown]
  - Sinus tachycardia [Unknown]

NARRATIVE: CASE EVENT DATE: 20220615
